FAERS Safety Report 17863993 (Version 1)
Quarter: 2020Q2

REPORT INFORMATION
  Report Type: Report from Study
  Country: US (occurrence: US)
  Receive Date: 20200605
  Receipt Date: 20200605
  Transmission Date: 20200714
  Serious: Yes (Other)
  Sender: FDA-Public Use
  Company Number: US-ROCHE-2613251

PATIENT
  Sex: Male

DRUGS (1)
  1. XELODA [Suspect]
     Active Substance: CAPECITABINE
     Indication: GASTRIC CANCER
     Dosage: ONGOING: YES, TAKE 2 TABLETS (1000 MG).
     Route: 048

REACTIONS (3)
  - Intentional product use issue [Unknown]
  - Malignant neoplasm progression [Unknown]
  - Off label use [Unknown]
